FAERS Safety Report 4315769-4 (Version None)
Quarter: 2004Q1

REPORT INFORMATION
  Report Type: 
  Country: None (occurrence: None)
  Receive Date: 20040302
  Receipt Date: 20031219
  Transmission Date: 20041129
  Serious: Yes (Hospitalization, Other)
  Sender: FDA-Public Use
  Company Number: US044439

PATIENT
  Age: 64 Year
  Sex: Female

DRUGS (11)
  1. ENBREL [Suspect]
     Indication: PSORIATIC ARTHROPATHY
     Dosage: 25 MG, TWICE WEEKLY, SC
     Route: 058
     Dates: start: 20010601
  2. CYCLOSPORINE [Concomitant]
  3. DOXAZOSIN MESYLATE [Concomitant]
  4. HYDROCHLOROTHIAZIDE [Concomitant]
  5. ATORAVASTATIN CALCIUM [Concomitant]
  6. FLUTICASONE/SALMETEROL [Concomitant]
  7. FEXOFENADINE HYDROCHLORIDE [Concomitant]
  8. TACROLIMUS [Concomitant]
  9. CLOTRIMAZOLE [Concomitant]
  10. SIROLIMUS [Concomitant]
  11. ACITRETIN [Concomitant]

REACTIONS (2)
  - APLASTIC ANAEMIA [None]
  - ARTHRALGIA [None]
